FAERS Safety Report 8892119 (Version 2)
Quarter: 2013Q1

REPORT INFORMATION
  Report Type: Spontaneous
  Country: US (occurrence: None)
  Receive Date: 20121031
  Receipt Date: 20121205
  Transmission Date: 20140127
  Serious: Yes (Hospitalization)
  Sender: FDA-Public Use
  Company Number: CRC-12-534

PATIENT
  Age: 58 Year
  Sex: Female

DRUGS (2)
  1. METOPROLOL TARTRATE [Suspect]
     Indication: HYPERTENSION
     Dosage: 1 TAB DAILY; ORALLY
     Route: 048
     Dates: start: 201209, end: 20121019
  2. NORVASC [Concomitant]

REACTIONS (7)
  - Nausea [None]
  - Vomiting [None]
  - Diarrhoea [None]
  - Dysarthria [None]
  - Speech disorder [None]
  - Hiccups [None]
  - Product substitution issue [None]
